FAERS Safety Report 17631897 (Version 1)
Quarter: 2020Q2

REPORT INFORMATION
  Report Type: Spontaneous
  Country: FR (occurrence: FR)
  Receive Date: 20200406
  Receipt Date: 20200406
  Transmission Date: 20200713
  Serious: Yes (Other)
  Sender: FDA-Public Use
  Company Number: FR-PFIZER INC-2020136653

PATIENT
  Age: 77 Year
  Sex: Male
  Weight: 54 kg

DRUGS (6)
  1. TAZOCILLINE [Suspect]
     Active Substance: PIPERACILLIN SODIUM\TAZOBACTAM SODIUM
     Indication: PNEUMONIA
     Dosage: 12 G, ONCE A DAY
     Route: 041
     Dates: start: 201902, end: 201902
  2. CEFOTAXIME [Suspect]
     Active Substance: CEFOTAXIME SODIUM
     Indication: LUNG DISORDER
     Dosage: 2 G, UNK
     Route: 041
     Dates: start: 20190319, end: 20190320
  3. METRONIDAZOLE B BRAUN [Suspect]
     Active Substance: METRONIDAZOLE
     Indication: LUNG DISORDER
     Dosage: 1000 MG, ONCE A DAY
     Route: 042
     Dates: start: 20190319, end: 20190320
  4. MEROPENEM PANPHARMA [Suspect]
     Active Substance: MEROPENEM
     Indication: LUNG DISORDER
     Dosage: UNK
     Route: 042
     Dates: start: 20190209, end: 20190212
  5. VANCOMYCINE MYLAN [Suspect]
     Active Substance: VANCOMYCIN
     Indication: PNEUMONIA
     Dosage: 2 G, ONCE A DAY
     Route: 041
     Dates: start: 201902, end: 201902
  6. AUGMENTIN [Suspect]
     Active Substance: AMOXICILLIN\CLAVULANATE POTASSIUM
     Indication: LUNG DISORDER
     Dosage: 4 G, UNK
     Route: 041
     Dates: start: 20190209, end: 20190216

REACTIONS (1)
  - Clostridium difficile colitis [Not Recovered/Not Resolved]

NARRATIVE: CASE EVENT DATE: 20190319
